FAERS Safety Report 9507397 (Version 1)
Quarter: 2013Q3

REPORT INFORMATION
  Report Type: Spontaneous
  Country: US (occurrence: None)
  Receive Date: 20130906
  Receipt Date: 20130906
  Transmission Date: 20140515
  Serious: Yes (Death)
  Sender: FDA-Public Use
  Company Number: None

PATIENT
  Age: 72 Year
  Sex: Female

DRUGS (1)
  1. TEMODAR 250 SCHERING-PLOUGH [Suspect]
     Indication: BRAIN NEOPLASM MALIGNANT
     Dosage: 250MG 5 DAYS PO. 5 DAYS PER MONTH
     Dates: start: 201303, end: 201307

REACTIONS (1)
  - Cerebrovascular accident [None]
